FAERS Safety Report 8898483 (Version 1)
Quarter: 2012Q4

REPORT INFORMATION
  Report Type: 
  Country: US (occurrence: US)
  Receive Date: 20121108
  Receipt Date: 20121108
  Transmission Date: 20130627
  Serious: No
  Sender: FDA-Public Use
  Company Number: US-AMGEN-USASP2012030159

PATIENT
  Sex: Male
  Weight: 74.83 kg

DRUGS (9)
  1. ENBREL [Suspect]
     Indication: ARTHRITIS
     Dosage: 50 mg, qwk
  2. ENBREL [Suspect]
     Indication: PSORIASIS
  3. NABUMETONE [Concomitant]
     Dosage: 500 mg, UNK
  4. PLAQUENIL                          /00072602/ [Concomitant]
     Dosage: 200 mg, UNK
  5. PROTONIX [Concomitant]
     Dosage: 20 mg, UNK
  6. VICODIN [Concomitant]
  7. SKELAXIN                           /00611501/ [Concomitant]
     Dosage: 800 mg, UNK
  8. FLEXERIL                           /00428402/ [Concomitant]
     Dosage: 10 mg, UNK
  9. TRAMADOL HCL [Concomitant]
     Dosage: 50 mg, UNK

REACTIONS (1)
  - Drug ineffective [Unknown]
